FAERS Safety Report 19849508 (Version 3)
Quarter: 2022Q1

REPORT INFORMATION
  Report Type: Spontaneous
  Country: GB (occurrence: GB)
  Receive Date: 20210918
  Receipt Date: 20220307
  Transmission Date: 20220423
  Serious: Yes (Other)
  Sender: FDA-Public Use
  Company Number: GB-MHRA-EYC 00260190

PATIENT
  Age: 59 Year
  Sex: Male
  Weight: 85.27 kg

DRUGS (3)
  1. CIPROFLOXACIN [Suspect]
     Active Substance: CIPROFLOXACIN
     Indication: Ill-defined disorder
     Dosage: UNK
     Route: 048
     Dates: start: 20210723, end: 20210827
  2. SIMVASTATIN [Concomitant]
     Active Substance: SIMVASTATIN
     Indication: Ill-defined disorder
     Dosage: UNK
     Route: 065
  3. TAMSULOSIN [Concomitant]
     Active Substance: TAMSULOSIN
     Indication: Ill-defined disorder
     Dosage: UNK
     Route: 065

REACTIONS (5)
  - Asthenia [Not Recovered/Not Resolved]
  - Pain [Not Recovered/Not Resolved]
  - Tendon pain [Not Recovered/Not Resolved]
  - Arthralgia [Unknown]
  - Pain in extremity [Unknown]

NARRATIVE: CASE EVENT DATE: 20210824
